FAERS Safety Report 15734184 (Version 3)
Quarter: 2019Q1

REPORT INFORMATION
  Report Type: Spontaneous
  Country: US (occurrence: US)
  Receive Date: 20181218
  Receipt Date: 20190211
  Transmission Date: 20190417
  Serious: Yes (Other)
  Sender: FDA-Public Use
  Company Number: US-JNJFOC-20181210478

PATIENT
  Age: 82 Year
  Sex: Male
  Weight: 86.18 kg

DRUGS (1)
  1. NEUTROGENA AGE SHIELD ANTI OXIDANT FACE SUNSCREEN BROAD SPECTRUM SPF70 [Suspect]
     Active Substance: AVOBENZONE\HOMOSALATE\OCTISALATE\OCTOCRYLENE\OXYBENZONE
     Indication: PROPHYLAXIS
     Dosage: PROBABLY LITTLE LESS THAN A FULL TEASPOON AMOUNT ENOUGH FOR NOSE, EYES AND WHOLE FACE, ONCE A DAY
     Route: 061
     Dates: start: 20181204, end: 201812

REACTIONS (1)
  - Hypersensitivity [Not Recovered/Not Resolved]

NARRATIVE: CASE EVENT DATE: 20181204
